FAERS Safety Report 23371148 (Version 1)
Quarter: 2024Q1

REPORT INFORMATION
  Report Type: Other
  Country: US (occurrence: None)
  Receive Date: 20240105
  Receipt Date: 20240105
  Transmission Date: 20240410
  Serious: No
  Sender: FDA-Public Use
  Company Number: US-ROCHE-3379876

PATIENT
  Age: 57 Year
  Sex: Female

DRUGS (30)
  1. OCREVUS [Suspect]
     Active Substance: OCRELIZUMAB
     Indication: Secondary progressive multiple sclerosis
     Dosage: THEN 600 MG EVERY 6 MONTHS?DATE OF TREATMENT: 12/JUN/2023, 26/DEC/2023, 12/DEC/2023,
     Route: 042
     Dates: start: 2022
  2. PLAVIX [Concomitant]
     Active Substance: CLOPIDOGREL BISULFATE
  3. ESTRACE [Concomitant]
     Active Substance: ESTRADIOL
  4. DDAVP [Concomitant]
     Active Substance: DESMOPRESSIN ACETATE
  5. AMPYRA [Concomitant]
     Active Substance: DALFAMPRIDINE
  6. XARELTO [Concomitant]
     Active Substance: RIVAROXABAN
  7. ACETAMINOPHEN\DICHLORALPHENAZONE\ISOMETHEPTENE [Concomitant]
     Active Substance: ACETAMINOPHEN\DICHLORALPHENAZONE\ISOMETHEPTENE
  8. ORETIC [Concomitant]
     Active Substance: HYDROCHLOROTHIAZIDE
  9. VITAMIN D3 [Concomitant]
     Active Substance: CHOLECALCIFEROL
  10. NEURONTIN [Concomitant]
     Active Substance: GABAPENTIN
  11. ZOLOFT [Concomitant]
     Active Substance: SERTRALINE HYDROCHLORIDE
  12. TEMOVATE [Concomitant]
     Active Substance: CLOBETASOL PROPIONATE
  13. LEVSIN [Concomitant]
     Active Substance: HYOSCYAMINE SULFATE
  14. GABAPENTIN [Concomitant]
     Active Substance: GABAPENTIN
     Indication: Neuropathy peripheral
     Route: 048
     Dates: start: 2017
  15. OXYBUTYNIN [Concomitant]
     Active Substance: OXYBUTYNIN
     Route: 048
  16. DESMOPRESSIN [Concomitant]
     Active Substance: DESMOPRESSIN
     Dosage: TWO TABLETS AT NIGHT, 0.2 MG PER TABLET
     Route: 048
  17. SERTRALINE [Concomitant]
     Active Substance: SERTRALINE HYDROCHLORIDE
     Indication: Depression
     Route: 048
  18. HYDROCHLOROTHIAZIDE [Concomitant]
     Active Substance: HYDROCHLOROTHIAZIDE
  19. ESTRADIOL [Concomitant]
     Active Substance: ESTRADIOL
  20. CELECOXIB [Concomitant]
     Active Substance: CELECOXIB
  21. CLOPIDOGREL [Concomitant]
     Active Substance: CLOPIDOGREL BISULFATE
  22. TRAMADOL HCL [Concomitant]
     Active Substance: TRAMADOL HYDROCHLORIDE
  23. RIZATRIPTAN [Concomitant]
     Active Substance: RIZATRIPTAN
  24. ASCORBIC ACID\VITAMIN B COMPLEX [Concomitant]
     Active Substance: ASCORBIC ACID\VITAMIN B COMPLEX
  25. CALCIUM CARBONATE\CHOLECALCIFEROL [Concomitant]
     Active Substance: CALCIUM CARBONATE\CHOLECALCIFEROL
  26. CINNAMON [Concomitant]
     Active Substance: CINNAMON
  27. OMEPRAZOLE [Concomitant]
     Active Substance: OMEPRAZOLE
  28. BOTOX [Concomitant]
     Active Substance: ONABOTULINUMTOXINA
  29. PYRIDOXINE [Concomitant]
     Active Substance: PYRIDOXINE
  30. THIAMINE HYDROCHLORIDE [Concomitant]
     Active Substance: THIAMINE HYDROCHLORIDE

REACTIONS (12)
  - Aphonia [Recovering/Resolving]
  - Fall [Unknown]
  - Contusion [Not Recovered/Not Resolved]
  - Limb injury [Unknown]
  - Pain [Not Recovered/Not Resolved]
  - Memory impairment [Not Recovered/Not Resolved]
  - Weight decreased [Not Recovered/Not Resolved]
  - Swelling [Not Recovered/Not Resolved]
  - Skin infection [Recovered/Resolved]
  - Respiratory syncytial virus infection [Recovered/Resolved]
  - Dyspnoea [Not Recovered/Not Resolved]
  - Dyspepsia [Not Recovered/Not Resolved]

NARRATIVE: CASE EVENT DATE: 20230629
